FAERS Safety Report 5032271-5 (Version None)
Quarter: 2006Q2

REPORT INFORMATION
  Report Type: 
  Country: None (occurrence: None)
  Receive Date: 20060619
  Receipt Date: 20060609
  Transmission Date: 20061013
  Serious: Yes (Other)
  Sender: FDA-Public Use
  Company Number: 2006-05-0929

PATIENT
  Age: 16 Year
  Sex: Male

DRUGS (1)
  1. NASONEX [Suspect]
     Indication: RHINITIS ALLERGIC
     Dosage: 100 MCG/DAY NASAL SPRAY
     Route: 045
     Dates: start: 20060502, end: 20060503

REACTIONS (1)
  - SWOLLEN TONGUE [None]
